FAERS Safety Report 11648146 (Version 1)
Quarter: 2015Q4

REPORT INFORMATION
  Report Type: Report from Study
  Country: US (occurrence: US)
  Receive Date: 20151021
  Receipt Date: 20151021
  Transmission Date: 20160304
  Serious: Yes (Death)
  Sender: FDA-Public Use
  Company Number: US-BIOGENIDEC-2015BI137097

PATIENT
  Sex: Female

DRUGS (1)
  1. TECFIDERA [Suspect]
     Active Substance: DIMETHYL FUMARATE
     Indication: MULTIPLE SCLEROSIS
     Dates: start: 20131009, end: 20150715

REACTIONS (5)
  - Cardiac failure congestive [Fatal]
  - Amyloidosis [Unknown]
  - Treatment noncompliance [Unknown]
  - Malaise [Unknown]
  - Plasma cell myeloma [Unknown]
